FAERS Safety Report 17229223 (Version 1)
Quarter: 2020Q1

REPORT INFORMATION
  Report Type: Spontaneous
  Country: FR (occurrence: FR)
  Receive Date: 20200103
  Receipt Date: 20200103
  Transmission Date: 20200409
  Serious: Yes (Hospitalization)
  Sender: FDA-Public Use
  Company Number: FR-TEVA-2019-FR-1160732

PATIENT
  Age: 72 Year
  Sex: Male
  Weight: 65 kg

DRUGS (9)
  1. GLICLAZIDE EG [Concomitant]
     Indication: TYPE 2 DIABETES MELLITUS
     Dosage: 240 MILLIGRAM DAILY; 1-0-1
     Route: 048
     Dates: end: 20190919
  2. METFORMINE EG 1000 MG, COMPRIM? PELLICUL? S?CABLE [Concomitant]
     Indication: TYPE 2 DIABETES MELLITUS
     Dosage: 1-1-1
     Route: 048
     Dates: end: 20190919
  3. ACIDE FOLIQUE [Concomitant]
     Active Substance: FOLIC ACID
     Indication: HYPOVITAMINOSIS
     Dosage: 10 MG
     Route: 048
  4. PACLITAXEL TEVA [Suspect]
     Active Substance: PACLITAXEL
     Indication: SQUAMOUS CELL CARCINOMA
     Dosage: 600 MG
     Route: 042
     Dates: start: 20190722, end: 20190905
  5. IFOSFAMIDE EG [Suspect]
     Active Substance: IFOSFAMIDE
     Indication: SQUAMOUS CELL CARCINOMA
     Dosage: 2220 MG
     Route: 042
     Dates: start: 20190722, end: 20190905
  6. ATORVASTATINE EG LABO 40 MG, COMPRIM? PELLICUL? [Concomitant]
     Indication: DYSLIPIDAEMIA
     Dosage: 40 MG
     Route: 048
  7. JANUVIA [Concomitant]
     Active Substance: SITAGLIPTIN PHOSPHATE
     Indication: TYPE 2 DIABETES MELLITUS
     Dosage: 50 MILLIGRAM DAILY; 0-1-0
     Route: 048
  8. JANUVIA [Concomitant]
     Active Substance: SITAGLIPTIN PHOSPHATE
     Indication: TYPE 2 DIABETES MELLITUS
     Dosage: 50 MILLIGRAM DAILY; 0-1-0
     Route: 048
     Dates: start: 20190925
  9. CISPLATINE MYLAN [Suspect]
     Active Substance: CISPLATIN
     Indication: SQUAMOUS CELL CARCINOMA
     Dosage: 46 MG
     Route: 042
     Dates: start: 20190722, end: 20190905

REACTIONS (1)
  - Acute kidney injury [Recovering/Resolving]

NARRATIVE: CASE EVENT DATE: 20190913
